FAERS Safety Report 11798554 (Version 1)
Quarter: 2015Q4

REPORT INFORMATION
  Report Type: Spontaneous
  Country: US (occurrence: US)
  Receive Date: 20151203
  Receipt Date: 20151203
  Transmission Date: 20160305
  Serious: No
  Sender: FDA-Public Use
  Company Number: US-AMGEN-USASP2015127676

PATIENT
  Age: 75 Year
  Sex: Female

DRUGS (2)
  1. ENBREL [Suspect]
     Active Substance: ETANERCEPT
     Indication: RHEUMATOID ARTHRITIS
     Dosage: 50 MG, QWK
     Route: 065
     Dates: start: 2005
  2. ENBREL [Suspect]
     Active Substance: ETANERCEPT
     Dosage: UNK, EVERY 12 TO 14 DAYS
     Route: 065

REACTIONS (9)
  - Device issue [Unknown]
  - Pruritus [Unknown]
  - Arthritis [Unknown]
  - Rash erythematous [Unknown]
  - Blood pressure increased [Unknown]
  - Rash pruritic [Unknown]
  - Gait disturbance [Unknown]
  - Swelling [Unknown]
  - Intentional product misuse [Unknown]
